FAERS Safety Report 22253371 (Version 2)
Quarter: 2023Q2

REPORT INFORMATION
  Report Type: Spontaneous
  Country: US (occurrence: US)
  Receive Date: 20230426
  Receipt Date: 20230504
  Transmission Date: 20230722
  Serious: Yes (Hospitalization, Other)
  Sender: FDA-Public Use
  Company Number: US-002147023-NVSC2023US091033

PATIENT
  Sex: Female

DRUGS (1)
  1. MYFORTIC [Suspect]
     Active Substance: MYCOPHENOLATE SODIUM
     Indication: Product used for unknown indication
     Dosage: 360 MG, TID
     Route: 048
     Dates: start: 20230312, end: 20230323

REACTIONS (5)
  - Pneumonia [Recovered/Resolved]
  - Herpes zoster [Unknown]
  - Dehydration [Unknown]
  - Decreased appetite [Unknown]
  - COVID-19 [Unknown]
